FAERS Safety Report 7973453-X (Version None)
Quarter: 2011Q4

REPORT INFORMATION
  Report Type: 
  Country: None (occurrence: None)
  Receive Date: 20111213
  Receipt Date: 20111201
  Transmission Date: 20120403
  Serious: No
  Sender: FDA-Public Use
  Company Number: JP-JNJFOC-20111205343

PATIENT
  Sex: Female
  Weight: 57 kg

DRUGS (11)
  1. PRAVASTATIN SODIUM [Concomitant]
     Route: 048
  2. AMLODIPINE [Concomitant]
     Route: 048
  3. CANDESARTAN CILEXETIL [Concomitant]
     Route: 048
  4. OMEPRAZOLE [Concomitant]
     Route: 048
  5. AMARYL [Concomitant]
     Route: 048
  6. ACTOS [Concomitant]
     Route: 048
  7. FENTANYL-100 [Suspect]
     Indication: PAIN
     Route: 062
     Dates: start: 20100819, end: 20101031
  8. PROMAC (POLAPREZINC) [Concomitant]
     Route: 048
  9. LENDORMIN [Concomitant]
     Route: 048
  10. XYLOCAINE [Concomitant]
     Indication: PAIN
     Route: 065
  11. ALOSENN [Concomitant]
     Route: 048

REACTIONS (1)
  - DRUG PRESCRIBING ERROR [None]
